FAERS Safety Report 20963765 (Version 2)
Quarter: 2022Q2

REPORT INFORMATION
  Report Type: Spontaneous
  Country: GB (occurrence: GB)
  Receive Date: 20220615
  Receipt Date: 20220622
  Transmission Date: 20220721
  Serious: Yes (Other)
  Sender: FDA-Public Use
  Company Number: GB-MHRA-MED-202206122112498580-DSRMF

PATIENT
  Age: 38 Year
  Sex: Female
  Weight: 48 kg

DRUGS (1)
  1. HYDROCORTISONE SODIUM SUCCINATE [Suspect]
     Active Substance: HYDROCORTISONE SODIUM SUCCINATE
     Dosage: UNK

REACTIONS (5)
  - Erythema [Not Recovered/Not Resolved]
  - Erythema [Unknown]
  - Skin exfoliation [Unknown]
  - Haemorrhage [Unknown]
  - Oedema [Unknown]

NARRATIVE: CASE EVENT DATE: 20210501
